FAERS Safety Report 7297706-6 (Version None)
Quarter: 2011Q1

REPORT INFORMATION
  Report Type: 
  Country: None (occurrence: None)
  Receive Date: 20110217
  Receipt Date: 20110207
  Transmission Date: 20110831
  Serious: Yes (Hospitalization)
  Sender: FDA-Public Use
  Company Number: NL-AMGEN-NLDSP2011008109

PATIENT
  Age: 64 Year
  Sex: Female

DRUGS (6)
  1. CALCICHEW [Concomitant]
     Dosage: UNK
  2. SIMVASTATIN [Concomitant]
     Dosage: UNK
  3. PROTON PUMP INHIBITORS [Concomitant]
     Dosage: UNK
  4. ASCAL                              /00002702/ [Concomitant]
     Dosage: 80 MG, 1X/DAY
  5. ENBREL [Suspect]
     Indication: RHEUMATOID ARTHRITIS
     Dosage: 50 MG, UNK
     Dates: start: 20060331
  6. TAMBOCOR [Concomitant]
     Dosage: 200 MG, 1X/DAY

REACTIONS (3)
  - ORGANISING PNEUMONIA [None]
  - DYSPHONIA [None]
  - BACK PAIN [None]
